FAERS Safety Report 20307053 (Version 2)
Quarter: 2022Q1

REPORT INFORMATION
  Report Type: Report from Study
  Country: US (occurrence: US)
  Receive Date: 20220107
  Receipt Date: 20220125
  Transmission Date: 20220424
  Serious: Yes (Hospitalization)
  Sender: FDA-Public Use
  Company Number: US-ABBVIE-22K-163-4220661-00

PATIENT
  Sex: Male

DRUGS (7)
  1. HUMIRA [Suspect]
     Active Substance: ADALIMUMAB
     Indication: Hidradenitis
     Dosage: CF?DAY 1
     Route: 058
     Dates: start: 20211016, end: 20211016
  2. HUMIRA [Suspect]
     Active Substance: ADALIMUMAB
     Dosage: CF?DAY 15
     Route: 058
     Dates: start: 20211030, end: 20211030
  3. HUMIRA [Suspect]
     Active Substance: ADALIMUMAB
     Dosage: CF
     Route: 058
     Dates: start: 2021, end: 202111
  4. HUMIRA [Suspect]
     Active Substance: ADALIMUMAB
     Dosage: CF
     Route: 058
     Dates: start: 2021
  5. JANSSEN COVID-19 VACCINE [Concomitant]
     Active Substance: AD26.COV2.S
     Indication: COVID-19 immunisation
     Dosage: JOHNSON AND JOHNSON?1ST DOSE
     Route: 030
     Dates: start: 202104, end: 202104
  6. JANSSEN COVID-19 VACCINE [Concomitant]
     Active Substance: AD26.COV2.S
     Dosage: THIRD DOSE
     Route: 030
  7. JANSSEN COVID-19 VACCINE [Concomitant]
     Active Substance: AD26.COV2.S
     Dosage: JOHNSON AND JOHNSON?BOOSTER DOSE
     Route: 030
     Dates: start: 20220120, end: 20220120

REACTIONS (5)
  - Hernia [Unknown]
  - Exposure to SARS-CoV-2 [Unknown]
  - Hidradenitis [Not Recovered/Not Resolved]
  - Therapeutic product effect decreased [Unknown]
  - COVID-19 [Unknown]

NARRATIVE: CASE EVENT DATE: 20210101
